FAERS Safety Report 13135262 (Version 1)
Quarter: 2017Q1

REPORT INFORMATION
  Report Type: Spontaneous
  Country: AT (occurrence: AT)
  Receive Date: 20170120
  Receipt Date: 20170120
  Transmission Date: 20170428
  Serious: Yes (Other)
  Sender: FDA-Public Use
  Company Number: AT-AMGEN GMBH-AUTSP2016181512

PATIENT
  Sex: Female
  Weight: 55 kg

DRUGS (4)
  1. XGEVA [Suspect]
     Active Substance: DENOSUMAB
     Indication: METASTASES TO BONE
     Dosage: UNK
     Route: 058
     Dates: start: 201606
  2. XGEVA [Suspect]
     Active Substance: DENOSUMAB
     Dosage: UNK, Q4WK
     Route: 058
     Dates: start: 201608
  3. VITAMINS WITH MINERALS [Concomitant]
     Active Substance: MINERALS\VITAMINS
     Indication: OSTEOPOROSIS
     Dosage: 2 UNITS, QD
  4. ANASTROZOL [Concomitant]
     Active Substance: ANASTROZOLE
     Indication: BREAST CANCER
     Dosage: 1 UNIT, QD
     Dates: start: 20160810

REACTIONS (1)
  - Dental caries [Recovered/Resolved]
